FAERS Safety Report 8895785 (Version 1)
Quarter: 2012Q4

REPORT INFORMATION
  Report Type: 
  Country: SE (occurrence: SE)
  Receive Date: 20121108
  Receipt Date: 20121108
  Transmission Date: 20130627
  Serious: Yes (Hospitalization)
  Sender: FDA-Public Use
  Company Number: SE-SANOFI-AVENTIS-2012SA081430

PATIENT
  Age: 86 Year
  Sex: Female

DRUGS (7)
  1. CLAFORAN [Suspect]
     Indication: RETROPERITONEAL ABSCESS
     Route: 065
     Dates: start: 201207, end: 201207
  2. OXYNORM [Concomitant]
  3. ESCITALOPRAM OXALATE [Concomitant]
  4. OMEPRAZOLE [Concomitant]
  5. RAMIPRIL [Concomitant]
  6. ALVEDON [Concomitant]
  7. OXASCAND [Concomitant]

REACTIONS (3)
  - Decreased appetite [Unknown]
  - Enterocolitis [Unknown]
  - Diarrhoea infectious [Unknown]
